APPROVED DRUG PRODUCT: EPTIFIBATIDE
Active Ingredient: EPTIFIBATIDE
Strength: 75MG/100ML
Dosage Form/Route: INJECTABLE;INJECTION
Application: A204361 | Product #002
Applicant: USV PRIVATE LTD
Approved: Mar 14, 2019 | RLD: No | RS: No | Type: DISCN